FAERS Safety Report 7198390-2 (Version None)
Quarter: 2010Q4

REPORT INFORMATION
  Report Type: 
  Country: None (occurrence: None)
  Receive Date: 20101227
  Receipt Date: 20101216
  Transmission Date: 20110411
  Serious: Yes (Death, Other)
  Sender: FDA-Public Use
  Company Number: JP-JNJFOC-20100700069

PATIENT
  Age: 55 Year
  Sex: Male

DRUGS (2)
  1. DUROTEP MT [Suspect]
     Indication: CANCER PAIN
     Route: 062
  2. DUROTEP MT [Suspect]
     Route: 062

REACTIONS (5)
  - APPLICATION SITE BLEEDING [None]
  - APPLICATION SITE VESICLES [None]
  - DELIRIUM [None]
  - MALIGNANT NEOPLASM PROGRESSION [None]
  - RESTLESSNESS [None]
